FAERS Safety Report 20457791 (Version 2)
Quarter: 2022Q1

REPORT INFORMATION
  Report Type: Report from Study
  Country: US (occurrence: US)
  Receive Date: 20220210
  Receipt Date: 20220303
  Transmission Date: 20220423
  Serious: No
  Sender: FDA-Public Use
  Company Number: US-NOVARTISTESTPH-NVSC2022US029395

PATIENT
  Sex: Female

DRUGS (1)
  1. KESIMPTA [Suspect]
     Active Substance: OFATUMUMAB
     Indication: Product used for unknown indication
     Dosage: 20 MG, QMO
     Route: 054
     Dates: start: 20220204

REACTIONS (4)
  - Pain of skin [Recovered/Resolved]
  - Bone pain [Recovered/Resolved]
  - Cough [Unknown]
  - Headache [Recovered/Resolved]
